FAERS Safety Report 4644280-6 (Version None)
Quarter: 2005Q2

REPORT INFORMATION
  Report Type: 
  Country: None (occurrence: None)
  Receive Date: 20050422
  Receipt Date: 20050413
  Transmission Date: 20051028
  Serious: Yes (Death, Hospitalization, Other)
  Sender: FDA-Public Use
  Company Number: 2005-03-1313

PATIENT
  Age: 47 Year
  Sex: Male

DRUGS (3)
  1. INTRON A [Suspect]
     Indication: HEPATITIS C
     Dosage: 10 MU TIW INTRAMUSCULAR
     Route: 030
     Dates: start: 20020316, end: 20020930
  2. REBETOL [Suspect]
     Indication: HEPATITIS C
     Dosage: 800 MG ORAL
     Route: 048
     Dates: start: 20020315, end: 20020829
  3. FERON INJECTABLE [Suspect]
     Indication: HEPATITIS C
     Dosage: 3 MIU BID INTRAVENOUS
     Route: 042
     Dates: start: 20020215, end: 20020314

REACTIONS (25)
  - ANAEMIA [None]
  - ASPERGILLOSIS [None]
  - BACK PAIN [None]
  - BLOOD LACTATE DEHYDROGENASE INCREASED [None]
  - C-REACTIVE PROTEIN INCREASED [None]
  - CARDIAC DISORDER [None]
  - CARDIAC VALVE DISEASE [None]
  - CARDIAC VALVE VEGETATION [None]
  - COLLAGEN DISORDER [None]
  - EMBOLISM [None]
  - EOSINOPHILIA [None]
  - FUNGAL ENDOCARDITIS [None]
  - FUNGAL SEPSIS [None]
  - INFECTION [None]
  - LEUKOCYTOSIS [None]
  - LYMPHOMA [None]
  - NECK PAIN [None]
  - PAIN IN EXTREMITY [None]
  - PYREXIA [None]
  - RENAL INFARCT [None]
  - RETINAL ARTERY OCCLUSION [None]
  - RETINAL EXUDATES [None]
  - RETINOPATHY [None]
  - SPLENIC INFARCTION [None]
  - ULTRASOUND DOPPLER ABNORMAL [None]
